FAERS Safety Report 8935528 (Version 1)
Quarter: 2012Q4

REPORT INFORMATION
  Report Type: Spontaneous
  Country: US (occurrence: None)
  Receive Date: 20121128
  Receipt Date: 20121128
  Transmission Date: 20130627
  Serious: Yes (Hospitalization)
  Sender: FDA-Public Use
  Company Number: None

PATIENT
  Age: 63 Year
  Sex: Male
  Weight: 64 kg

DRUGS (1)
  1. CHLORDIAZEPOXIDE [Suspect]
     Indication: ANXIETY
     Dosage: 25 MB BID PO
     Route: 048
     Dates: start: 20031003, end: 20121010

REACTIONS (11)
  - Mental status changes [None]
  - Hypersomnia [None]
  - Drug level increased [None]
  - Polydipsia [None]
  - Orthostatic hypotension [None]
  - Hypokalaemia [None]
  - Fall [None]
  - Syncope [None]
  - Confusional state [None]
  - Somnolence [None]
  - Rhabdomyolysis [None]
